FAERS Safety Report 5693731-7 (Version None)
Quarter: 2008Q2

REPORT INFORMATION
  Report Type: 
  Country: None (occurrence: None)
  Receive Date: 20080403
  Receipt Date: 20080220
  Transmission Date: 20081010
  Serious: Yes (Hospitalization, Disabling, Other)
  Sender: FDA-Public Use
  Company Number: DE-ROCHE-554545

PATIENT
  Age: 44 Year
  Sex: Female
  Weight: 57 kg

DRUGS (3)
  1. RIBAVIRIN [Suspect]
     Route: 048
     Dates: start: 20080114, end: 20080220
  2. PEGASYS [Suspect]
     Route: 058
     Dates: start: 20080114, end: 20080220
  3. VX-950 [Suspect]
     Dosage: PERMANENTLY DISCONTINUED
     Route: 048
     Dates: start: 20080114, end: 20080220

REACTIONS (2)
  - PNEUMOTHORAX [None]
  - RASH [None]
